FAERS Safety Report 20870005 (Version 2)
Quarter: 2022Q2

REPORT INFORMATION
  Report Type: Report from Study
  Country: CA (occurrence: CA)
  Receive Date: 20220525
  Receipt Date: 20220608
  Transmission Date: 20220720
  Serious: Yes (Hospitalization, Other)
  Sender: FDA-Public Use
  Company Number: CA-JNJFOC-20220356118

PATIENT
  Age: 69 Year
  Sex: Male
  Weight: 65.7 kg

DRUGS (1)
  1. REMICADE [Suspect]
     Active Substance: INFLIXIMAB
     Indication: Crohn^s disease
     Route: 041
     Dates: start: 20171024

REACTIONS (6)
  - Liver abscess [Unknown]
  - Gastrointestinal carcinoma [Unknown]
  - Gastrointestinal inflammation [Recovering/Resolving]
  - Post procedural complication [Recovering/Resolving]
  - Anal fissure [Recovering/Resolving]
  - Weight decreased [Unknown]
